FAERS Safety Report 6229723-9 (Version None)
Quarter: 2009Q2

REPORT INFORMATION
  Report Type: 
  Country: None (occurrence: None)
  Receive Date: 20090615
  Receipt Date: 20050513
  Transmission Date: 20091009
  Serious: Yes (Life-Threatening, Hospitalization, Other)
  Sender: FDA-Public Use
  Company Number: JP-MERCK-0410USA01550

PATIENT
  Age: 19 Year
  Sex: Male

DRUGS (7)
  1. PEPCID [Suspect]
     Indication: PROPHYLAXIS AGAINST GASTROINTESTINAL ULCER
     Route: 048
     Dates: start: 20040901, end: 20040927
  2. IMURAN [Suspect]
     Indication: IGA NEPHROPATHY
     Route: 048
     Dates: start: 20040901, end: 20040927
  3. IMURAN [Suspect]
     Indication: HAEMATURIA
     Route: 048
     Dates: start: 20040901, end: 20040927
  4. WARFARIN POTASSIUM [Concomitant]
     Route: 048
     Dates: start: 20040901
  5. PREDONINE [Concomitant]
     Route: 048
     Dates: start: 20040901, end: 20040928
  6. PREDONINE [Concomitant]
     Route: 048
     Dates: start: 20040929
  7. PERSANTINE [Concomitant]
     Route: 048
     Dates: start: 20040901

REACTIONS (6)
  - AGRANULOCYTOSIS [None]
  - ALOPECIA [None]
  - CHEST PAIN [None]
  - INFECTION [None]
  - PANCYTOPENIA [None]
  - STOMATITIS [None]
